FAERS Safety Report 23379069 (Version 1)
Quarter: 2024Q1

REPORT INFORMATION
  Report Type: Spontaneous
  Country: US (occurrence: US)
  Receive Date: 20240108
  Receipt Date: 20240108
  Transmission Date: 20240409
  Serious: Yes (Other)
  Sender: FDA-Public Use
  Company Number: US-BIOVITRUM-2024-US-000256

PATIENT
  Age: 28 Year
  Sex: Female

DRUGS (1)
  1. KINERET [Suspect]
     Active Substance: ANAKINRA
     Indication: Still^s disease
     Dosage: 100MG TWICE DAILY
     Route: 058
     Dates: start: 20230729

REACTIONS (3)
  - Still^s disease [Unknown]
  - Condition aggravated [Unknown]
  - Off label use [Unknown]
